FAERS Safety Report 10020604 (Version 4)
Quarter: 2014Q2

REPORT INFORMATION
  Report Type: Spontaneous
  Country: BR (occurrence: BR)
  Receive Date: 20140319
  Receipt Date: 20140611
  Transmission Date: 20141212
  Serious: Yes (Hospitalization, Other)
  Sender: FDA-Public Use
  Company Number: PHHY2014BR031672

PATIENT
  Age: 75 Year
  Sex: Female
  Weight: 70 kg

DRUGS (3)
  1. DIOVAN HCT [Suspect]
     Indication: HYPERTENSION
     Dosage: 1 DF (320MG VALS+25 MG HCT), IN MORNING
     Route: 048
     Dates: start: 20091003
  2. ATENOLOL [Concomitant]
     Indication: HYPERTENSION
     Dosage: 2 DF, A DAY
     Route: 048
  3. AAS [Concomitant]
     Indication: COAGULOPATHY
     Dosage: 100 MG, A DAY
     Route: 048

REACTIONS (7)
  - Arrhythmia [Recovering/Resolving]
  - Deafness [Recovered/Resolved]
  - Localised infection [Recovering/Resolving]
  - Blood pressure fluctuation [Recovered/Resolved]
  - Dizziness [Recovered/Resolved]
  - Blood cholesterol increased [Recovering/Resolving]
  - Exostosis [Unknown]
